FAERS Safety Report 5037401-7 (Version None)
Quarter: 2006Q2

REPORT INFORMATION
  Report Type: 
  Country: None (occurrence: None)
  Receive Date: 20060601
  Receipt Date: 20060207
  Transmission Date: 20061013
  Serious: No
  Sender: FDA-Public Use
  Company Number: 2006PV008269

PATIENT
  Age: 81 Year
  Sex: Male
  Weight: 104.3273 kg

DRUGS (5)
  1. BYETTA [Suspect]
     Indication: DIABETES MELLITUS NON-INSULIN-DEPENDENT
     Dosage: 10 MCG;BID;SC
     Route: 058
     Dates: start: 20060110, end: 20060129
  2. BYETTA [Suspect]
     Indication: DIABETES MELLITUS NON-INSULIN-DEPENDENT
     Dosage: 10 MCG;BID;SC
     Route: 058
     Dates: start: 20060130
  3. HUMALOG [Concomitant]
  4. GLIPIZIDE [Concomitant]
  5. LANTUS [Concomitant]

REACTIONS (5)
  - AGEUSIA [None]
  - DECREASED APPETITE [None]
  - DRUG INEFFECTIVE [None]
  - STRESS [None]
  - WEIGHT DECREASED [None]
